FAERS Safety Report 17292736 (Version 1)
Quarter: 2020Q1

REPORT INFORMATION
  Report Type: Spontaneous
  Country: JP (occurrence: JP)
  Receive Date: 20200121
  Receipt Date: 20200121
  Transmission Date: 20200409
  Serious: Yes (Other)
  Sender: FDA-Public Use
  Company Number: JP-BAYER-2020-002820

PATIENT
  Age: 48 Year
  Sex: Female

DRUGS (4)
  1. MIRENA [Suspect]
     Active Substance: LEVONORGESTREL
     Indication: MENORRHAGIA
     Dosage: 20 MCG/24HR, CONT
     Route: 015
     Dates: start: 20190928
  2. IRON [Concomitant]
     Active Substance: IRON
     Indication: ANAEMIA
  3. MIRENA [Suspect]
     Active Substance: LEVONORGESTREL
     Indication: ANAEMIA
  4. MIRENA [Suspect]
     Active Substance: LEVONORGESTREL
     Indication: DYSMENORRHOEA

REACTIONS (8)
  - Metrorrhagia [None]
  - Procedural haemorrhage [None]
  - Procedural pain [None]
  - Blood pressure increased [None]
  - Urticaria [None]
  - Depressed mood [None]
  - Metrorrhagia [Recovered/Resolved]
  - Libido decreased [None]

NARRATIVE: CASE EVENT DATE: 20190928
